FAERS Safety Report 14914460 (Version 1)
Quarter: 2018Q2

REPORT INFORMATION
  Report Type: Spontaneous
  Country: US (occurrence: US)
  Receive Date: 20180501
  Receipt Date: 20180501
  Transmission Date: 20180711
  Serious: Yes (Hospitalization)
  Sender: FDA-Public Use
  Company Number: None

PATIENT
  Age: 88 Year
  Sex: Female
  Weight: 102.97 kg

DRUGS (1)
  1. SMZ/TMP DS 800-160 TAB (GENERIC FOR BACTRIM) [Suspect]
     Active Substance: SULFAMETHOXAZOLE\TRIMETHOPRIM
     Indication: CYSTITIS
     Dosage: ?          QUANTITY:1 DF DOSAGE FORM;?
     Dates: start: 20180321, end: 20180325

REACTIONS (9)
  - Headache [None]
  - Dyskinesia [None]
  - Decreased appetite [None]
  - Hyperhidrosis [None]
  - Pruritus [None]
  - Asthenia [None]
  - Dizziness [None]
  - Gait disturbance [None]
  - Arthralgia [None]

NARRATIVE: CASE EVENT DATE: 20180325
